FAERS Safety Report 17911456 (Version 1)
Quarter: 2020Q2

REPORT INFORMATION
  Report Type: Spontaneous
  Country: US (occurrence: US)
  Receive Date: 20200618
  Receipt Date: 20200618
  Transmission Date: 20200714
  Serious: No
  Sender: FDA-Public Use
  Company Number: US-METUCHEN-STN-2020-0065

PATIENT
  Sex: Male

DRUGS (2)
  1. STENDRA [Suspect]
     Active Substance: AVANAFIL
     Indication: ERECTILE DYSFUNCTION
     Dosage: 50MG AS NEEDED
     Route: 048
  2. STENDRA [Suspect]
     Active Substance: AVANAFIL
     Dosage: 50MG DAILY
     Route: 048

REACTIONS (1)
  - Erection increased [Unknown]

NARRATIVE: CASE EVENT DATE: 2020
